FAERS Safety Report 24068435 (Version 2)
Quarter: 2024Q3

REPORT INFORMATION
  Report Type: Spontaneous
  Country: JP (occurrence: JP)
  Receive Date: 20240710
  Receipt Date: 20240710
  Transmission Date: 20241017
  Serious: No
  Sender: ROCHE
  Company Number: JP-CHUGAI-2024007666

PATIENT
  Age: 9 Decade
  Sex: Female

DRUGS (1)
  1. ROZLYTREK [Suspect]
     Active Substance: ENTRECTINIB
     Indication: Non-small cell lung cancer
     Dosage: 400 MILLIGRAM, QD
     Route: 065

REACTIONS (3)
  - Blood bilirubin increased [Not Recovered/Not Resolved]
  - Jaundice cholestatic [Unknown]
  - Nausea [Not Recovered/Not Resolved]
